FAERS Safety Report 24925781 (Version 1)
Quarter: 2025Q1

REPORT INFORMATION
  Report Type: Spontaneous
  Country: US (occurrence: US)
  Receive Date: 20250205
  Receipt Date: 20250205
  Transmission Date: 20250409
  Serious: Yes (Other)
  Sender: NOVO NORDISK
  Company Number: US-NOVOPROD-1268133

PATIENT
  Age: 47 Year
  Sex: Female

DRUGS (3)
  1. WEGOVY [Suspect]
     Active Substance: SEMAGLUTIDE
  2. WEGOVY [Suspect]
     Active Substance: SEMAGLUTIDE
     Indication: Product used for unknown indication
     Dosage: 0.25 MG, QW
     Route: 058
     Dates: start: 20240319
  3. WEGOVY [Suspect]
     Active Substance: SEMAGLUTIDE
     Dates: start: 20240608

REACTIONS (5)
  - Multiple sclerosis relapse [Recovered/Resolved]
  - Central nervous system lesion [Recovered/Resolved]
  - Pain [Not Recovered/Not Resolved]
  - Feeling cold [Recovered/Resolved]
  - Chills [Recovered/Resolved]

NARRATIVE: CASE EVENT DATE: 20240319
